FAERS Safety Report 10014953 (Version 1)
Quarter: 2014Q1

REPORT INFORMATION
  Report Type: Spontaneous
  Country: US (occurrence: US)
  Receive Date: 20140317
  Receipt Date: 20140317
  Transmission Date: 20141002
  Serious: Yes (Death)
  Sender: FDA-Public Use
  Company Number: US-JNJFOC-20140308145

PATIENT
  Age: 65 Year
  Sex: Male

DRUGS (7)
  1. INVEGA SUSTENNA [Suspect]
     Indication: PRODUCT USED FOR UNKNOWN INDICATION
     Route: 030
     Dates: start: 201203
  2. ACTOS [Concomitant]
     Route: 065
  3. LIPITOR [Concomitant]
     Route: 065
  4. SEROQUEL XR [Concomitant]
     Route: 065
  5. DEPAKOTE [Concomitant]
     Route: 065
  6. TRAZODONE [Concomitant]
     Route: 065
  7. COGENTIN [Concomitant]
     Route: 065

REACTIONS (1)
  - Death [Fatal]
